FAERS Safety Report 19046208 (Version 1)
Quarter: 2021Q1

REPORT INFORMATION
  Report Type: Spontaneous
  Country: GB (occurrence: GB)
  Receive Date: 20210323
  Receipt Date: 20210323
  Transmission Date: 20210420
  Serious: Yes (Other)
  Sender: FDA-Public Use
  Company Number: GB-PFIZER INC-2021262941

PATIENT
  Age: 56 Year
  Sex: Female
  Weight: 74 kg

DRUGS (6)
  1. ESTRIOL [Suspect]
     Active Substance: ESTRIOL
     Dosage: 270 UG
     Dates: start: 20210308
  2. UTROGESTAN [Concomitant]
     Active Substance: PROGESTERONE
     Dosage: 1 DF, 1X/DAY
     Dates: start: 20201008, end: 20210308
  3. FLUOXETINE [Concomitant]
     Active Substance: FLUOXETINE HYDROCHLORIDE
     Dosage: 1 DF, 1X/DAY
     Dates: start: 20200521
  4. ESTRADIOL. [Suspect]
     Active Substance: ESTRADIOL
     Dosage: 600 UG
     Dates: start: 20210308
  5. ESTRONE [Suspect]
     Active Substance: ESTRONE
     Dosage: 1.4 MG
     Dates: start: 20210308
  6. EVOREL [Concomitant]
     Dosage: 1 DF, 2X/WEEK
     Dates: start: 20201008, end: 20210308

REACTIONS (1)
  - Blood pressure increased [Recovered/Resolved]

NARRATIVE: CASE EVENT DATE: 20210308
